FAERS Safety Report 5671989-8 (Version None)
Quarter: 2008Q1

REPORT INFORMATION
  Report Type: 
  Country: None (occurrence: None)
  Receive Date: 20080318
  Receipt Date: 20080318
  Transmission Date: 20080703
  Serious: No
  Sender: FDA-Public Use
  Company Number: None

PATIENT
  Sex: Female

DRUGS (3)
  1. ZOCOR [Suspect]
     Indication: DIVERTICULITIS
     Dosage: 40MG
  2. ZOCOR [Suspect]
     Indication: GASTROOESOPHAGEAL REFLUX DISEASE
     Dosage: 40MG
  3. SIMVASTIN [Concomitant]

REACTIONS (1)
  - GASTROOESOPHAGEAL REFLUX DISEASE [None]
